FAERS Safety Report 22093505 (Version 3)
Quarter: 2023Q2

REPORT INFORMATION
  Report Type: Report from Study
  Country: JP (occurrence: JP)
  Receive Date: 20230314
  Receipt Date: 20230414
  Transmission Date: 20230722
  Serious: Yes (Life-Threatening, Hospitalization)
  Sender: FDA-Public Use
  Company Number: JP-JNJFOC-20230129471

PATIENT
  Age: 49 Year
  Sex: Female
  Weight: 67.2 kg

DRUGS (19)
  1. TECLISTAMAB [Suspect]
     Active Substance: TECLISTAMAB
     Indication: Plasma cell myeloma
     Dosage: 720 MICROGRAM/KG; MED KIT NO. 380480
     Route: 058
     Dates: start: 20210531, end: 20221219
  2. MENOAID [Concomitant]
     Indication: Amenorrhoea
     Dosage: 1
     Route: 062
     Dates: start: 20170927
  3. METHYLSALICYLATE [Concomitant]
     Indication: Intervertebral disc protrusion
     Dosage: 1
     Route: 061
     Dates: start: 20220704
  4. METOCLOPRAMIDE [Concomitant]
     Active Substance: METOCLOPRAMIDE
     Indication: Nausea
     Route: 042
     Dates: start: 20230107, end: 20230107
  5. METOCLOPRAMIDE [Concomitant]
     Active Substance: METOCLOPRAMIDE
     Indication: Prophylaxis of nausea and vomiting
     Route: 048
     Dates: start: 20210727, end: 20210727
  6. METOCLOPRAMIDE [Concomitant]
     Active Substance: METOCLOPRAMIDE
     Route: 042
     Dates: start: 20230122, end: 20230122
  7. SENNOSIDES A AND B [Concomitant]
     Active Substance: SENNOSIDES A AND B
     Indication: Constipation
     Route: 048
     Dates: start: 20230111, end: 20230111
  8. DAPSONE [Concomitant]
     Active Substance: DAPSONE
     Indication: Pneumocystis jirovecii pneumonia
     Route: 048
     Dates: start: 20170207, end: 20210511
  9. DAPSONE [Concomitant]
     Active Substance: DAPSONE
     Route: 048
     Dates: start: 20210621
  10. CALCIUM CHLORIDE ANHYDROUS\POTASSIUM CHLORIDE\SODIUM CHLORIDE\SODIUM L [Concomitant]
     Active Substance: CALCIUM CHLORIDE ANHYDROUS\POTASSIUM CHLORIDE\SODIUM CHLORIDE\SODIUM LACTATE
     Indication: Therapeutic procedure
     Route: 042
     Dates: start: 20210727, end: 20210727
  11. CALCIUM CHLORIDE ANHYDROUS\POTASSIUM CHLORIDE\SODIUM CHLORIDE\SODIUM L [Concomitant]
     Active Substance: CALCIUM CHLORIDE ANHYDROUS\POTASSIUM CHLORIDE\SODIUM CHLORIDE\SODIUM LACTATE
     Indication: Prophylaxis against dehydration
     Route: 042
     Dates: start: 20230105, end: 20230105
  12. CALCIUM CHLORIDE ANHYDROUS\POTASSIUM CHLORIDE\SODIUM CHLORIDE\SODIUM L [Concomitant]
     Active Substance: CALCIUM CHLORIDE ANHYDROUS\POTASSIUM CHLORIDE\SODIUM CHLORIDE\SODIUM LACTATE
     Route: 042
     Dates: start: 20230116, end: 20230116
  13. LACTIC ACID [Concomitant]
     Active Substance: LACTIC ACID
     Indication: Dehydration
     Route: 042
     Dates: start: 20230105, end: 20230105
  14. SOLDEM 3AG [Concomitant]
     Indication: Prophylaxis against dehydration
     Route: 042
     Dates: start: 20230106, end: 20230109
  15. POTASSIUM CHLORIDE\SODIUM CHLORIDE\SODIUM LACTATE [Concomitant]
     Active Substance: POTASSIUM CHLORIDE\SODIUM CHLORIDE\SODIUM LACTATE
     Indication: Prophylaxis against dehydration
     Route: 042
     Dates: start: 20230117, end: 20230118
  16. INSULIN NOS [Concomitant]
     Active Substance: INSULIN NOS
     Indication: Hyperglycaemia
     Route: 058
     Dates: start: 20230117, end: 20230121
  17. HUMALOG [Concomitant]
     Active Substance: INSULIN LISPRO
     Indication: Hyperglycaemia
     Route: 058
     Dates: start: 20230201, end: 20230224
  18. TENELIGLIPTIN HYDROBROMIDE HYDRATE [Concomitant]
     Active Substance: TENELIGLIPTIN HYDROBROMIDE HYDRATE
     Indication: Hyperglycaemia
     Route: 048
     Dates: start: 20230224
  19. IPRAGLIFLOZIN L-PROLINE [Concomitant]
     Active Substance: IPRAGLIFLOZIN L-PROLINE
     Indication: Hyperglycaemia
     Route: 048
     Dates: start: 20230224

REACTIONS (2)
  - COVID-19 pneumonia [Not Recovered/Not Resolved]
  - COVID-19 pneumonia [Recovered/Resolved]

NARRATIVE: CASE EVENT DATE: 20230105
